FAERS Safety Report 7048466-5 (Version None)
Quarter: 2010Q4

REPORT INFORMATION
  Report Type: 
  Country: None (occurrence: None)
  Receive Date: 20101015
  Receipt Date: 20101015
  Transmission Date: 20110411
  Serious: Yes (Other)
  Sender: FDA-Public Use
  Company Number: None

PATIENT
  Age: 63 Year
  Sex: Female
  Weight: 89.8122 kg

DRUGS (2)
  1. PROPOFOL [Suspect]
     Indication: COLONOSCOPY
     Dosage: 150MG IV
     Route: 042
     Dates: start: 20101012, end: 20101012
  2. PROPOFOL [Suspect]
     Indication: SEDATION
     Dosage: 150MG IV
     Route: 042
     Dates: start: 20101012, end: 20101012

REACTIONS (5)
  - DIZZINESS [None]
  - DRUG TOLERANCE DECREASED [None]
  - FEELING ABNORMAL [None]
  - SLUGGISHNESS [None]
  - SOMNOLENCE [None]
